FAERS Safety Report 6528904-4 (Version None)
Quarter: 2009Q4

REPORT INFORMATION
  Report Type: 
  Country: None (occurrence: None)
  Receive Date: 20091223
  Receipt Date: 20091217
  Transmission Date: 20100525
  Serious: Yes (Other)
  Sender: FDA-Public Use
  Company Number: 003247

PATIENT
  Age: 25 Year
  Sex: Female

DRUGS (1)
  1. VIMPAT [Suspect]
     Dosage: 150 MG

REACTIONS (2)
  - INFECTION [None]
  - INTERSTITIAL LUNG DISEASE [None]
